FAERS Safety Report 4869091-8 (Version None)
Quarter: 2005Q4

REPORT INFORMATION
  Report Type: 
  Country: None (occurrence: None)
  Receive Date: 20051227
  Receipt Date: 20051221
  Transmission Date: 20060501
  Serious: Yes (Death)
  Sender: FDA-Public Use
  Company Number: 2005-04-2021

PATIENT
  Age: 56 Year
  Sex: Male

DRUGS (9)
  1. PEG-INTRON [Suspect]
     Indication: HEPATITIS C
     Dosage: 100 MCG SUBCUTANEOUS
     Route: 058
     Dates: start: 20040510
  2. REBETOL [Suspect]
     Indication: HEPATITIS C
     Dosage: 1000 MG ORAL
     Route: 048
     Dates: start: 20040510
  3. ALDACTONE [Concomitant]
  4. INDERAL [Concomitant]
  5. INDERAL [Concomitant]
  6. INDERAL [Concomitant]
  7. CANRENOL [Concomitant]
  8. CIPROFLOXACIN [Concomitant]
  9. ZOVIRAX [Concomitant]

REACTIONS (1)
  - DEATH [None]
